FAERS Safety Report 5773479-0 (Version None)
Quarter: 2008Q2

REPORT INFORMATION
  Report Type: 
  Country: None (occurrence: None)
  Receive Date: 20080601
  Receipt Date: 20080312
  Transmission Date: 20081010
  Serious: No
  Sender: FDA-Public Use
  Company Number: US200803002939

PATIENT
  Age: 61 Year
  Sex: Female

DRUGS (3)
  1. BYETTA [Suspect]
     Dates: start: 20071101, end: 20071201
  2. ACTOS (GLIMEPIRIDE HYDROCHLORIDE) [Concomitant]
  3. GLIMEPIRIDE [Concomitant]

REACTIONS (6)
  - ABDOMINAL DISTENSION [None]
  - ABDOMINAL PAIN UPPER [None]
  - DEPRESSION [None]
  - MUSCLE SPASMS [None]
  - RASH [None]
  - WEIGHT INCREASED [None]
